FAERS Safety Report 11414174 (Version 2)
Quarter: 2016Q3

REPORT INFORMATION
  Report Type: Spontaneous
  Country: US (occurrence: US)
  Receive Date: 20150824
  Receipt Date: 20160701
  Transmission Date: 20161109
  Serious: Yes (Hospitalization, Other)
  Sender: FDA-Public Use
  Company Number: US-APOTEX-2015AP012231

PATIENT
  Age: 21 Year
  Sex: Male

DRUGS (8)
  1. OXYMORPHONE [Suspect]
     Active Substance: OXYMORPHONE
     Indication: PRODUCT USED FOR UNKNOWN INDICATION
     Dosage: 10 MG, DAILY
     Route: 045
  2. OXYCODONE [Suspect]
     Active Substance: OXYCODONE
     Dosage: OCCASIONALLY AND THEN, PROGRESSED TO DAILY 60 MG
     Route: 045
  3. DIAMORPHINE                        /00197602/ [Suspect]
     Active Substance: DIACETYLMORPHINE HYDROCHLORIDE
     Indication: PRODUCT USED FOR UNKNOWN INDICATION
     Route: 045
  4. PIPERACILLIN AND TAZOBACTAM [Suspect]
     Active Substance: PIPERACILLIN SODIUM\TAZOBACTAM SODIUM
     Indication: PRODUCT USED FOR UNKNOWN INDICATION
     Route: 065
  5. LORAZEPAM. [Suspect]
     Active Substance: LORAZEPAM
     Indication: DELIRIUM
     Dosage: 1 MG AND THEN, SECOND DOSE OF 1 MG ON ICU DAY 5
     Route: 065
  6. HALOPERIDOL. [Suspect]
     Active Substance: HALOPERIDOL
     Indication: DELIRIUM
     Dosage: 5 MG, SINGLE
     Route: 042
  7. OXYMORPHONE [Suspect]
     Active Substance: OXYMORPHONE
     Dosage: 10 MG DAILY
     Route: 048
  8. OXYCODONE [Suspect]
     Active Substance: OXYCODONE
     Indication: PRODUCT USED FOR UNKNOWN INDICATION
     Dosage: OCCASIONALLY AND THEN PROGRESSED TO DAILY 60 MG
     Route: 048

REACTIONS (3)
  - Condition aggravated [Recovered/Resolved]
  - Delirium [Recovered/Resolved]
  - Rhabdomyolysis [Unknown]
